FAERS Safety Report 18288140 (Version 2)
Quarter: 2020Q3

REPORT INFORMATION
  Report Type: Report from Study
  Country: FR (occurrence: FR)
  Receive Date: 20200921
  Receipt Date: 20200930
  Transmission Date: 20201103
  Serious: Yes (Death, Other)
  Sender: FDA-Public Use
  Company Number: FR-BRISTOL-MYERS SQUIBB COMPANY-BMS-2020-073662

PATIENT
  Age: 67 Year
  Sex: Male

DRUGS (1)
  1. NIVOLUMAB [Suspect]
     Active Substance: NIVOLUMAB
     Indication: SQUAMOUS CELL CARCINOMA
     Dosage: 240 MILLIGRAM, FREQUENCY : J1?J15
     Route: 042
     Dates: start: 20190906, end: 20191118

REACTIONS (3)
  - Malignant neoplasm progression [Fatal]
  - Malnutrition [Unknown]
  - Dysphagia [Unknown]

NARRATIVE: CASE EVENT DATE: 201911
